FAERS Safety Report 20237334 (Version 3)
Quarter: 2022Q1

REPORT INFORMATION
  Report Type: Spontaneous
  Country: HR (occurrence: HR)
  Receive Date: 20211228
  Receipt Date: 20220110
  Transmission Date: 20220423
  Serious: Yes (Other)
  Sender: FDA-Public Use
  Company Number: HR-JNJFOC-20211061498

PATIENT
  Sex: Male

DRUGS (6)
  1. REMICADE [Suspect]
     Active Substance: INFLIXIMAB
     Indication: Colitis ulcerative
     Route: 042
  2. REMICADE [Suspect]
     Active Substance: INFLIXIMAB
     Indication: Sacroiliitis
  3. REMICADE [Suspect]
     Active Substance: INFLIXIMAB
     Indication: Spondylitis
  4. ADALIMUMAB [Suspect]
     Active Substance: ADALIMUMAB
     Indication: Colitis ulcerative
     Route: 065
  5. ADALIMUMAB [Suspect]
     Active Substance: ADALIMUMAB
     Indication: Spondylitis
  6. ADALIMUMAB [Suspect]
     Active Substance: ADALIMUMAB
     Indication: Sacroiliitis

REACTIONS (4)
  - Quadriparesis [Unknown]
  - Demyelination [Unknown]
  - Multiple sclerosis [Unknown]
  - Drug ineffective [Unknown]
